FAERS Safety Report 7747077-3 (Version None)
Quarter: 2011Q3

REPORT INFORMATION
  Report Type: 
  Country: None (occurrence: None)
  Receive Date: 20110913
  Receipt Date: 20110909
  Transmission Date: 20111222
  Serious: Yes (Death, Other)
  Sender: FDA-Public Use
  Company Number: PHFR2011GB01536

PATIENT
  Sex: Male
  Weight: 90 kg

DRUGS (6)
  1. PREDNISOLONE [Concomitant]
     Indication: CHRONIC OBSTRUCTIVE PULMONARY DISEASE
     Dosage: 20 MG, UNK
     Route: 048
  2. PREDNISOLONE [Concomitant]
     Indication: INFECTION
  3. AFINITOR [Suspect]
     Indication: RENAL CELL CARCINOMA
     Dosage: 10 MG, UNK
     Route: 048
  4. AMOXICILLIN AND CLAVULANATE POTASSIUM [Concomitant]
     Indication: CHRONIC OBSTRUCTIVE PULMONARY DISEASE
     Dosage: 625 MG, UNK
     Route: 048
  5. AFINITOR [Suspect]
     Dosage: 5 MG, UNK
     Dates: start: 20101210
  6. AMOXICILLIN AND CLAVULANATE POTASSIUM [Concomitant]
     Indication: INFECTION

REACTIONS (23)
  - METASTASES TO LUNG [None]
  - PULMONARY EMBOLISM [None]
  - NEOPLASM PROGRESSION [None]
  - RED BLOOD CELL COUNT DECREASED [None]
  - RED CELL DISTRIBUTION WIDTH INCREASED [None]
  - NEOPLASM MALIGNANT [None]
  - CHEST DISCOMFORT [None]
  - LYMPHADENOPATHY [None]
  - MEAN CELL HAEMOGLOBIN DECREASED [None]
  - SUDDEN DEATH [None]
  - RENAL FAILURE CHRONIC [None]
  - BLOOD PHOSPHORUS DECREASED [None]
  - BLOOD SODIUM DECREASED [None]
  - PNEUMONITIS [None]
  - DYSPNOEA [None]
  - HAEMOGLOBIN DECREASED [None]
  - LUNG INFECTION [None]
  - RENAL CANCER METASTATIC [None]
  - BLOOD CALCIUM DECREASED [None]
  - METASTASES TO LIVER [None]
  - METASTASES TO HEART [None]
  - RIGHT VENTRICULAR FAILURE [None]
  - BLOOD ALBUMIN DECREASED [None]
